FAERS Safety Report 12787310 (Version 2)
Quarter: 2017Q1

REPORT INFORMATION
  Report Type: Spontaneous
  Country: US (occurrence: US)
  Receive Date: 20160928
  Receipt Date: 20170216
  Transmission Date: 20170428
  Serious: No
  Sender: FDA-Public Use
  Company Number: US-PFIZER INC-2016447994

PATIENT
  Age: 60 Year
  Sex: Female

DRUGS (1)
  1. XELJANZ XR [Suspect]
     Active Substance: TOFACITINIB CITRATE
     Indication: RHEUMATOID ARTHRITIS
     Dosage: 11 MG, DAILY (TAKE 11MG BY MOUTH EVERY DAY)
     Route: 048
     Dates: start: 20160826

REACTIONS (4)
  - Cough [Unknown]
  - Drug effect incomplete [Recovering/Resolving]
  - Gastrooesophageal reflux disease [Unknown]
  - Nasopharyngitis [Unknown]
